FAERS Safety Report 7577493-4 (Version None)
Quarter: 2011Q2

REPORT INFORMATION
  Report Type: 
  Country: None (occurrence: None)
  Receive Date: 20110621
  Receipt Date: 20110607
  Transmission Date: 20111010
  Serious: Yes (Hospitalization, Other)
  Sender: FDA-Public Use
  Company Number: DKLU1070662

PATIENT
  Age: 6 Month
  Sex: Female

DRUGS (10)
  1. SABRIL [Suspect]
     Indication: INFANTILE SPASMS
     Dosage: 100 MG MILLIGRAM (S), ORAL
     Route: 048
  2. TRIMETHOPRIM [Concomitant]
  3. AUGENTIN (AUGMENTIN) [Concomitant]
  4. NYSTATIN [Concomitant]
  5. PREDNISOLONE [Concomitant]
  6. ADRENOCORTICOTROPHIC HORMONE (CORTICOTROPIN) [Concomitant]
  7. CHLORAL HYDRATE (CHLORAL HYDRATE) [Concomitant]
  8. PYRIDOXINE HYDROCHLORIDE (PYRIDOXINE HYDROCHLORIDE) [Concomitant]
  9. CLOTRIMAZOLE [Concomitant]
  10. OMEPRAZOLE [Concomitant]

REACTIONS (4)
  - CONDITION AGGRAVATED [None]
  - STEVENS-JOHNSON SYNDROME [None]
  - SOMNOLENCE [None]
  - CONVULSION [None]
